FAERS Safety Report 8017370-8 (Version None)
Quarter: 2012Q1

REPORT INFORMATION
  Report Type: 
  Country: None (occurrence: None)
  Receive Date: 20120102
  Receipt Date: 20111223
  Transmission Date: 20120608
  Serious: Yes (Hospitalization)
  Sender: FDA-Public Use
  Company Number: DE-ROCHE-790954

PATIENT
  Sex: Female
  Weight: 75 kg

DRUGS (20)
  1. MABTHERA [Suspect]
     Dosage: CY 3
     Route: 042
  2. IONOSTERIL [Concomitant]
     Dosage: TDD : 1000 ML
  3. OLMESARTAN MEDOXOMIL [Concomitant]
     Indication: PRODUCT USED FOR UNKNOWN INDICATION
     Dosage: 0.5 DFX1D
  4. MABTHERA [Suspect]
     Dosage: CY2
     Route: 042
  5. MIRTAZAPINE [Concomitant]
     Indication: PRODUCT USED FOR UNKNOWN INDICATION
  6. FENISTIL [Concomitant]
     Indication: PRODUCT USED FOR UNKNOWN INDICATION
  7. BENDAMUSTINE [Suspect]
     Dosage: 2 CY
     Route: 042
  8. ASPIRIN [Concomitant]
     Indication: PRODUCT USED FOR UNKNOWN INDICATION
  9. CITALOPRAM HYDROBROMIDE [Concomitant]
     Indication: PRODUCT USED FOR UNKNOWN INDICATION
     Dosage: HALF DOSE FORM PER DAY, 1 DF
  10. MABTHERA [Suspect]
     Indication: B-CELL LYMPHOMA
     Dosage: INFUSION AND MOST RECENT DOSE PRIOR TO SAE 04 JULY 2011
     Route: 042
  11. MABTHERA [Suspect]
     Dosage: CY 5
     Route: 042
  12. BENDAMUSTINE [Suspect]
     Indication: B-CELL LYMPHOMA
     Dosage: INFUSION AND MOST RECENT DOSE PRIOR TO SAE 04 JULY 2011
     Route: 042
  13. BENDAMUSTINE [Suspect]
     Dosage: 5 CY
     Route: 042
  14. LEVOTHYROXINE SODIUM [Concomitant]
     Indication: PRODUCT USED FOR UNKNOWN INDICATION
  15. ENOXAPARIN SODIUM [Concomitant]
     Indication: PRODUCT USED FOR UNKNOWN INDICATION
  16. HYDROCHLOROTHIAZIDE [Concomitant]
     Indication: PRODUCT USED FOR UNKNOWN INDICATION
     Dosage: HALF DOSE FORM PER DAY
  17. MABTHERA [Suspect]
     Dosage: CY 4
     Route: 042
  18. BENDAMUSTINE [Suspect]
     Dosage: 3 CY
     Route: 042
  19. BENDAMUSTINE [Suspect]
     Dosage: 4 CY
     Route: 042
  20. OLMESARTAN MEDOXOMIL [Concomitant]
     Dosage: DOSE : UNKNOWN

REACTIONS (3)
  - GENERAL PHYSICAL HEALTH DETERIORATION [None]
  - GASTROENTERITIS [None]
  - DIARRHOEA [None]
